FAERS Safety Report 21208067 (Version 1)
Quarter: 2022Q3

REPORT INFORMATION
  Report Type: Spontaneous
  Country: US (occurrence: None)
  Receive Date: 20220811
  Receipt Date: 20220811
  Transmission Date: 20221027
  Serious: No
  Sender: FDA-Public Use
  Company Number: None

PATIENT
  Sex: Female

DRUGS (1)
  1. TALTZ [Suspect]
     Active Substance: IXEKIZUMAB
     Indication: Psoriasis
     Dosage: 80MG EVERY 4 WEEKS SUBCUTANEOUS?
     Route: 058
     Dates: start: 20220113

REACTIONS (5)
  - Drug ineffective [None]
  - Condition aggravated [None]
  - Pruritus [None]
  - Rash macular [None]
  - Burning sensation [None]
